FAERS Safety Report 25544661 (Version 2)
Quarter: 2025Q3

REPORT INFORMATION
  Report Type: Spontaneous
  Country: CN (occurrence: CN)
  Receive Date: 20250711
  Receipt Date: 20250718
  Transmission Date: 20251021
  Serious: Yes (Other)
  Sender: AMGEN
  Company Number: CN-AMGEN-CHNSP2025132337

PATIENT
  Age: 39 Year
  Sex: Female

DRUGS (3)
  1. PROLIA [Suspect]
     Active Substance: DENOSUMAB
     Indication: Product used for unknown indication
     Route: 058
  2. CINACALCET HYDROCHLORIDE [Suspect]
     Active Substance: CINACALCET HYDROCHLORIDE
     Indication: Hyperparathyroidism primary
     Dosage: 25 MILLIGRAM, QD
     Route: 048
  3. CALCITONIN [Concomitant]
     Active Substance: CALCITONIN
     Dosage: 100 UNIT, Q8H
     Route: 058

REACTIONS (1)
  - Parathyroid tumour malignant [Unknown]
